FAERS Safety Report 12215469 (Version 1)
Quarter: 2016Q1

REPORT INFORMATION
  Report Type: Spontaneous
  Country: FR (occurrence: FR)
  Receive Date: 20160328
  Receipt Date: 20160328
  Transmission Date: 20160526
  Serious: Yes (Death)
  Sender: FDA-Public Use
  Company Number: FR-TEVA-644764ISR

PATIENT
  Age: 52 Year
  Sex: Female

DRUGS (1)
  1. DIAZEPAM TEVA 2 MG [Suspect]
     Active Substance: DIAZEPAM

REACTIONS (1)
  - Death [Fatal]
